FAERS Safety Report 6414884-9 (Version None)
Quarter: 2009Q4

REPORT INFORMATION
  Report Type: 
  Country: None (occurrence: None)
  Receive Date: 20091026
  Receipt Date: 20091026
  Transmission Date: 20100525
  Serious: Yes (Life-Threatening)
  Sender: FDA-Public Use
  Company Number: None

PATIENT
  Age: 66 Year
  Sex: Female
  Weight: 54.4316 kg

DRUGS (1)
  1. PROAIR HFA [Suspect]
     Indication: ASTHMA
     Dosage: 2 PUFFS 8.5GM EVERY 4 HOURS OTHER
     Route: 050
     Dates: start: 20090301, end: 20091023

REACTIONS (1)
  - PRODUCT PACKAGING QUANTITY ISSUE [None]
